FAERS Safety Report 6291018-5 (Version None)
Quarter: 2009Q3

REPORT INFORMATION
  Report Type: 
  Country: None (occurrence: None)
  Receive Date: 20090730
  Receipt Date: 20090721
  Transmission Date: 20100115
  Serious: Yes (Other)
  Sender: FDA-Public Use
  Company Number: GB-WYE-H10364009

PATIENT
  Age: 82 Year
  Sex: Male

DRUGS (6)
  1. CORDARONE [Suspect]
     Indication: CARDIAC FIBRILLATION
     Route: 048
     Dates: start: 20090703
  2. TIOTROPIUM BROMIDE [Concomitant]
     Dosage: 18 MG
  3. DIGOXIN [Concomitant]
     Dosage: 150 MG
  4. SYNACORT [Concomitant]
  5. DILTIAZEM [Concomitant]
  6. ACETYLSALICYLIC ACID [Concomitant]
     Dosage: 75 MG

REACTIONS (4)
  - COUGH [None]
  - DECREASED APPETITE [None]
  - OEDEMA PERIPHERAL [None]
  - WEIGHT DECREASED [None]
